FAERS Safety Report 6566747-6 (Version None)
Quarter: 2010Q1

REPORT INFORMATION
  Report Type: 
  Country: None (occurrence: None)
  Receive Date: 20100127
  Receipt Date: 20100112
  Transmission Date: 20100710
  Serious: Yes (Hospitalization)
  Sender: FDA-Public Use
  Company Number: 2010GW000025

PATIENT
  Age: 57 Year
  Sex: Female
  Weight: 76.6579 kg

DRUGS (4)
  1. ALDARA [Suspect]
     Indication: PRECANCEROUS CELLS PRESENT
     Dosage: Q3W; TOP
     Route: 061
     Dates: start: 20081203, end: 20090112
  2. BACTRIM DS [Suspect]
     Indication: INFECTION
     Dosage: 1 DF; BID; PO
     Route: 048
     Dates: start: 20090112, end: 20090101
  3. PREMPRO [Concomitant]
  4. VITAMINS [Concomitant]

REACTIONS (25)
  - APPLICATION SITE ABSCESS [None]
  - APPLICATION SITE CELLULITIS [None]
  - APPLICATION SITE DISCHARGE [None]
  - APPLICATION SITE DISCOLOURATION [None]
  - APPLICATION SITE ERYTHEMA [None]
  - APPLICATION SITE INFECTION [None]
  - APPLICATION SITE INFLAMMATION [None]
  - APPLICATION SITE PAIN [None]
  - APPLICATION SITE SCAB [None]
  - APPLICATION SITE SCAR [None]
  - BLOOD ALKALINE PHOSPHATASE INCREASED [None]
  - BLOOD CREATININE INCREASED [None]
  - BLOOD GLUCOSE INCREASED [None]
  - BLOOD POTASSIUM DECREASED [None]
  - CONDITION AGGRAVATED [None]
  - FATIGUE [None]
  - HAEMOGLOBIN DECREASED [None]
  - MALAISE [None]
  - NAUSEA [None]
  - PAIN IN EXTREMITY [None]
  - PROTEUS INFECTION [None]
  - PRURITUS [None]
  - SKIN DISORDER [None]
  - STAPHYLOCOCCAL INFECTION [None]
  - URTICARIA [None]
